FAERS Safety Report 9943313 (Version 1)
Quarter: 2014Q1

REPORT INFORMATION
  Report Type: Spontaneous
  Country: US (occurrence: GB)
  Receive Date: 20140303
  Receipt Date: 20140303
  Transmission Date: 20141002
  Serious: Yes (Other)
  Sender: FDA-Public Use
  Company Number: GB-FRI-1000054877

PATIENT
  Age: 69 Year
  Sex: Male
  Weight: 105 kg

DRUGS (6)
  1. LINACLOTIDE [Suspect]
     Dosage: 290 MCG
     Route: 048
     Dates: start: 20131128, end: 20131230
  2. ATORVASTATIN [Concomitant]
  3. DULOXETINE [Concomitant]
  4. EMOZUL GASTRO RESISTANT [Concomitant]
  5. MOVICOL [Concomitant]
  6. TAMSULOSIN [Concomitant]

REACTIONS (4)
  - Diarrhoea [Recovered/Resolved]
  - Dizziness [Recovered/Resolved]
  - Syncope [Recovered/Resolved]
  - Nausea [Unknown]
